FAERS Safety Report 8151688-3 (Version None)
Quarter: 2012Q1

REPORT INFORMATION
  Report Type: 
  Country: None (occurrence: None)
  Receive Date: 20120221
  Receipt Date: 20120208
  Transmission Date: 20120608
  Serious: Yes (Other)
  Sender: FDA-Public Use
  Company Number: BR-AMGEN-BRASP2012009363

PATIENT
  Age: 54 Year
  Sex: Female
  Weight: 75 kg

DRUGS (5)
  1. OMEPRAZOLE [Concomitant]
     Dosage: UNK
  2. DICLOFENAC [Concomitant]
     Dosage: UNK
  3. ENBREL [Suspect]
     Indication: PSORIATIC ARTHROPATHY
     Dosage: 50 MG, ONCE WEEKLY
     Route: 058
     Dates: start: 20110801, end: 20110901
  4. METHOTREXATE [Concomitant]
     Dosage: 10 TABLETS, ONCE WEEKLY
  5. FOLIC ACID [Concomitant]
     Dosage: UNK

REACTIONS (3)
  - SWELLING [None]
  - HYPOAESTHESIA [None]
  - SKIN DISCOLOURATION [None]
